FAERS Safety Report 12978436 (Version 1)
Quarter: 2016Q4

REPORT INFORMATION
  Report Type: Spontaneous
  Country: US (occurrence: US)
  Receive Date: 20161123
  Receipt Date: 20161123
  Transmission Date: 20170207
  Serious: Yes (Hospitalization)
  Sender: FDA-Public Use
  Company Number: None

PATIENT
  Age: 52 Year
  Sex: Female

DRUGS (1)
  1. CAPECITABINE. [Suspect]
     Active Substance: CAPECITABINE
     Indication: NEOPLASM MALIGNANT
     Dosage: 3500MG/DIVIDED DOSES; DAILY 14 DAYS ON AND 7 DAYS OFF; ORALLY
     Route: 048
     Dates: start: 20160922

REACTIONS (4)
  - Diarrhoea [None]
  - Stomatitis [None]
  - Blood potassium decreased [None]
  - Palmar-plantar erythrodysaesthesia syndrome [None]

NARRATIVE: CASE EVENT DATE: 20161114
